FAERS Safety Report 7318939-6 (Version None)
Quarter: 2011Q1

REPORT INFORMATION
  Report Type: 
  Country: None (occurrence: None)
  Receive Date: 20110228
  Receipt Date: 20101117
  Transmission Date: 20110831
  Serious: No
  Sender: FDA-Public Use
  Company Number: US-MYLANLABS-2010S1021188

PATIENT
  Sex: Female

DRUGS (5)
  1. NEURONTIN [Concomitant]
     Indication: NEURALGIA
  2. TORSEMIDE [Concomitant]
     Indication: DIURETIC THERAPY
  3. BACLOFEN [Suspect]
     Indication: MUSCLE TIGHTNESS
     Route: 048
     Dates: start: 20101021, end: 20101022
  4. OXYCODONE [Concomitant]
     Indication: PAIN
  5. CYMBALTA [Concomitant]
     Indication: NEURALGIA

REACTIONS (4)
  - DYSKINESIA [None]
  - MALAISE [None]
  - SOMNOLENCE [None]
  - GAIT DISTURBANCE [None]
